FAERS Safety Report 11895471 (Version 2)
Quarter: 2016Q2

REPORT INFORMATION
  Report Type: Spontaneous
  Country: US (occurrence: US)
  Receive Date: 20160107
  Receipt Date: 20160412
  Transmission Date: 20160815
  Serious: No
  Sender: FDA-Public Use
  Company Number: ALCN2015US007950

PATIENT
  Age: 53 Year
  Sex: Female

DRUGS (4)
  1. ZADITOR [Suspect]
     Active Substance: KETOTIFEN FUMARATE
     Indication: EYE IRRITATION
  2. ZADITOR [Suspect]
     Active Substance: KETOTIFEN FUMARATE
     Indication: OCULAR HYPERAEMIA
  3. ZADITOR [Suspect]
     Active Substance: KETOTIFEN FUMARATE
     Indication: EYE ALLERGY
     Dosage: 1 GTT, BID
     Route: 047
     Dates: start: 20151210, end: 20151215
  4. ZADITOR [Suspect]
     Active Substance: KETOTIFEN FUMARATE
     Indication: EYE PRURITUS

REACTIONS (1)
  - Drug ineffective [Unknown]

NARRATIVE: CASE EVENT DATE: 20151210
